FAERS Safety Report 5416702-4 (Version None)
Quarter: 2007Q3

REPORT INFORMATION
  Report Type: 
  Country: None (occurrence: None)
  Receive Date: 20070816
  Receipt Date: 20070808
  Transmission Date: 20080115
  Serious: Yes (Hospitalization)
  Sender: FDA-Public Use
  Company Number: A0595809A

PATIENT
  Age: 60 Year
  Sex: Male
  Weight: 90.9 kg

DRUGS (4)
  1. SALMETEROL + FLUTICASONE [Suspect]
     Indication: CHRONIC OBSTRUCTIVE PULMONARY DISEASE
     Route: 055
     Dates: start: 20050329, end: 20060228
  2. NICODERM [Suspect]
     Dosage: 14MG PER DAY
     Route: 061
     Dates: start: 20060102
  3. VASOTEC [Concomitant]
     Indication: HYPERTENSION
     Dosage: 2.5MG PER DAY
  4. ADALAT [Concomitant]
     Indication: HYPERTENSION
     Dosage: 30MG PER DAY

REACTIONS (6)
  - ANXIETY [None]
  - CHRONIC OBSTRUCTIVE PULMONARY DISEASE [None]
  - DYSPNOEA [None]
  - EMOTIONAL DISORDER [None]
  - FEELING ABNORMAL [None]
  - INSOMNIA [None]
